FAERS Safety Report 24704704 (Version 6)
Quarter: 2025Q2

REPORT INFORMATION
  Report Type: Report from Study
  Country: US (occurrence: US)
  Receive Date: 20241206
  Receipt Date: 20250422
  Transmission Date: 20250716
  Serious: Yes (Other)
  Sender: TAKEDA
  Company Number: US-TAKEDA-2023TUS074356

PATIENT
  Age: 80 Year
  Sex: Female

DRUGS (17)
  1. IXAZOMIB [Suspect]
     Active Substance: IXAZOMIB
     Indication: Plasma cell myeloma
  2. IXAZOMIB [Suspect]
     Active Substance: IXAZOMIB
  3. IXAZOMIB [Suspect]
     Active Substance: IXAZOMIB
  4. IXAZOMIB [Suspect]
     Active Substance: IXAZOMIB
  5. IXAZOMIB [Suspect]
     Active Substance: IXAZOMIB
  6. IXAZOMIB [Suspect]
     Active Substance: IXAZOMIB
  7. IXAZOMIB [Suspect]
     Active Substance: IXAZOMIB
  8. IXAZOMIB [Suspect]
     Active Substance: IXAZOMIB
  9. POMALYST [Suspect]
     Active Substance: POMALIDOMIDE
     Indication: Plasma cell myeloma
  10. DEXAMETHASONE [Concomitant]
     Active Substance: DEXAMETHASONE
  11. ATENOLOL [Concomitant]
     Active Substance: ATENOLOL
  12. ZOLEDRONIC ACID [Concomitant]
     Active Substance: ZOLEDRONIC ACID
  13. ACYCLOVIR [Concomitant]
     Active Substance: ACYCLOVIR
  14. VITAMIN D3 [Concomitant]
     Active Substance: CHOLECALCIFEROL
  15. ASPIRIN [Concomitant]
     Active Substance: ASPIRIN
  16. AMLODIPINE BESYLATE [Concomitant]
     Active Substance: AMLODIPINE BESYLATE
  17. LISINOPRIL [Concomitant]
     Active Substance: LISINOPRIL

REACTIONS (24)
  - Memory impairment [Unknown]
  - Arthralgia [Unknown]
  - Neuropathy peripheral [Unknown]
  - Balance disorder [Unknown]
  - Mental disorder [Unknown]
  - Peripheral swelling [Unknown]
  - Solar lentigo [Not Recovered/Not Resolved]
  - Brain fog [Unknown]
  - Joint swelling [Unknown]
  - Gait disturbance [Recovered/Resolved]
  - Vertigo [Unknown]
  - Dehydration [Unknown]
  - Feeling cold [Not Recovered/Not Resolved]
  - Bursitis [Not Recovered/Not Resolved]
  - Amnesia [Unknown]
  - Product dose omission issue [Unknown]
  - Peripheral coldness [Not Recovered/Not Resolved]
  - Hair growth abnormal [Not Recovered/Not Resolved]
  - Off label use [Unknown]
  - Pain in extremity [Unknown]
  - Asthenia [Not Recovered/Not Resolved]
  - Dyspnoea [Not Recovered/Not Resolved]
  - Fatigue [Unknown]
  - Oedema peripheral [Unknown]

NARRATIVE: CASE EVENT DATE: 20230720
